FAERS Safety Report 7648214-1 (Version None)
Quarter: 2011Q3

REPORT INFORMATION
  Report Type: 
  Country: None (occurrence: None)
  Receive Date: 20110801
  Receipt Date: 20110727
  Transmission Date: 20111222
  Serious: No
  Sender: FDA-Public Use
  Company Number: US-PFIZER INC-2011018432

PATIENT
  Sex: Male

DRUGS (4)
  1. PRISTIQ [Suspect]
     Indication: DEPRESSION
     Dosage: 50 MG, 1X/DAY
     Route: 048
     Dates: start: 20110601, end: 20110601
  2. EFFEXOR XR [Suspect]
     Dosage: UNK
  3. PRISTIQ [Suspect]
     Indication: ANXIETY
  4. PROZAC [Suspect]
     Dosage: UNK

REACTIONS (6)
  - FEAR [None]
  - NERVOUSNESS [None]
  - URINE FLOW DECREASED [None]
  - ABNORMAL DREAMS [None]
  - URINE OUTPUT DECREASED [None]
  - DRY MOUTH [None]
